FAERS Safety Report 18619942 (Version 1)
Quarter: 2020Q4

REPORT INFORMATION
  Report Type: Spontaneous
  Country: FR (occurrence: FR)
  Receive Date: 20201215
  Receipt Date: 20201215
  Transmission Date: 20210114
  Serious: Yes (Hospitalization)
  Sender: FDA-Public Use
  Company Number: FR-PFIZER INC-2020490725

PATIENT
  Age: 17 Year
  Sex: Male

DRUGS (2)
  1. HUMIRA [Suspect]
     Active Substance: ADALIMUMAB
     Indication: CROHN^S DISEASE
     Dosage: 1 DF
     Route: 058
     Dates: start: 201510, end: 201807
  2. LINEZOLID. [Suspect]
     Active Substance: LINEZOLID
     Indication: OSTEITIS
     Dosage: 1 DF
     Route: 048
     Dates: start: 2018, end: 2019

REACTIONS (3)
  - Off label use [Unknown]
  - Hypoaesthesia [Not Recovered/Not Resolved]
  - Paraesthesia [Not Recovered/Not Resolved]

NARRATIVE: CASE EVENT DATE: 2018
